FAERS Safety Report 4929311-8 (Version None)
Quarter: 2006Q1

REPORT INFORMATION
  Report Type: 
  Country: None (occurrence: None)
  Receive Date: 20060301
  Receipt Date: 20060220
  Transmission Date: 20060701
  Serious: Yes (Other)
  Sender: FDA-Public Use
  Company Number: 2006UW02918

PATIENT
  Age: 57 Year
  Sex: Female
  Weight: 79.4 kg

DRUGS (3)
  1. ARIMIDEX [Suspect]
     Indication: BREAST CANCER
     Route: 048
  2. ATENOLOL [Concomitant]
  3. EFFEXOR [Concomitant]

REACTIONS (8)
  - ARTHRALGIA [None]
  - BONE PAIN [None]
  - HIP SWELLING [None]
  - INSOMNIA [None]
  - JOINT DISLOCATION [None]
  - MOBILITY DECREASED [None]
  - OEDEMA PERIPHERAL [None]
  - SWELLING [None]
